FAERS Safety Report 22968903 (Version 4)
Quarter: 2023Q4

REPORT INFORMATION
  Report Type: Spontaneous
  Country: DE (occurrence: DE)
  Receive Date: 20230922
  Receipt Date: 20231025
  Transmission Date: 20240110
  Serious: Yes (Death, Hospitalization, Other)
  Sender: FDA-Public Use
  Company Number: DE-002147023-NVSC2023DE120226

PATIENT
  Sex: Female

DRUGS (5)
  1. FULVESTRANT [Suspect]
     Active Substance: FULVESTRANT
     Indication: Hormone receptor positive HER2 negative breast cancer
     Dosage: 500 MILLIGRAM, ONCE A DAY (500 MG, QD (EVERY 4 WEEKS))
     Route: 030
     Dates: start: 20190222
  2. LETROZOLE [Suspect]
     Active Substance: LETROZOLE
     Indication: Breast cancer metastatic
     Dosage: 2.5 MILLIGRAM, ONCE A DAY
     Route: 048
     Dates: start: 20180413, end: 20190221
  3. KISQALI [Suspect]
     Active Substance: RIBOCICLIB
     Indication: Hormone receptor positive HER2 negative breast cancer
     Dosage: 600 MILLIGRAM, ONCE A DAY (600 MG, QD (SCHEMA 21 DAYS INTAKE, THAN 7 DAYS PAUSE))
     Route: 048
     Dates: start: 20190222, end: 20220414
  4. KISQALI [Suspect]
     Active Substance: RIBOCICLIB
     Dosage: 600 MILLIGRAM, ONCE A DAY
     Route: 048
     Dates: start: 20180413, end: 20190221
  5. KISQALI [Suspect]
     Active Substance: RIBOCICLIB
     Dosage: 600 MILLIGRAM, ONCE A DAY (600 MG, QD (SCHEMA 21 DAYS INTAKE, THAN 7 DAYS PAUSE))
     Route: 048
     Dates: start: 20220927, end: 20230520

REACTIONS (5)
  - Death [Fatal]
  - Metastases to pleura [Fatal]
  - Hormone receptor positive HER2 negative breast cancer [Fatal]
  - Malignant neoplasm progression [Fatal]
  - Dyspnoea [Unknown]

NARRATIVE: CASE EVENT DATE: 20230520
